FAERS Safety Report 5935970-3 (Version None)
Quarter: 2008Q4

REPORT INFORMATION
  Report Type: 
  Country: None (occurrence: None)
  Receive Date: 20081030
  Receipt Date: 20081027
  Transmission Date: 20090506
  Serious: Yes (Hospitalization)
  Sender: FDA-Public Use
  Company Number: US-MERCK-0810USA04753

PATIENT
  Age: 71 Year
  Sex: Female

DRUGS (3)
  1. COZAAR [Suspect]
     Route: 048
     Dates: start: 20070101
  2. COZAAR [Suspect]
     Route: 048
     Dates: end: 20081001
  3. COZAAR [Suspect]
     Route: 048
     Dates: start: 20081001

REACTIONS (3)
  - ACCIDENT [None]
  - FATIGUE [None]
  - PRURITUS GENERALISED [None]
